FAERS Safety Report 6253087-8 (Version None)
Quarter: 2009Q3

REPORT INFORMATION
  Report Type: 
  Country: None (occurrence: None)
  Receive Date: 20090701
  Receipt Date: 20090622
  Transmission Date: 20100115
  Serious: Yes (Hospitalization, Other)
  Sender: FDA-Public Use
  Company Number: PHEH2009US06150

PATIENT
  Sex: Male
  Weight: 70.748 kg

DRUGS (9)
  1. EXJADE [Suspect]
     Indication: MYELOFIBROSIS
     Dosage: 500 MG, QD
     Route: 048
     Dates: start: 20090320
  2. EXJADE [Suspect]
     Dosage: 1000 MG, QD
  3. DOXEPIN HCL [Concomitant]
     Dosage: 75 MG, QD
  4. LACTULOSE [Concomitant]
     Dosage: 30 ML, TID
  5. PROTONIX [Concomitant]
     Dosage: 40 MG, BID
  6. SPIRONOLACTONE [Concomitant]
     Dosage: 50 MG, QD
  7. CALCIUM CARBONATE [Concomitant]
     Dosage: 500 MG, BID
     Route: 048
  8. ACETAMINOPHEN [Concomitant]
     Dosage: 500 MG 2 AS DIRECTED
  9. MIRALAX [Concomitant]
     Dosage: 17 GM AS NEEDED
     Route: 048

REACTIONS (20)
  - ACTIVATED PARTIAL THROMBOPLASTIN TIME PROLONGED [None]
  - AGITATION [None]
  - ALANINE AMINOTRANSFERASE INCREASED [None]
  - ANAEMIA [None]
  - ASPARTATE AMINOTRANSFERASE INCREASED [None]
  - BLOOD ALKALINE PHOSPHATASE INCREASED [None]
  - CACHEXIA [None]
  - CONFUSIONAL STATE [None]
  - DYSPNOEA [None]
  - GASTRIC VARICES HAEMORRHAGE [None]
  - HAEMATOCRIT DECREASED [None]
  - HAEMOGLOBIN DECREASED [None]
  - LIVER DISORDER [None]
  - MALAISE [None]
  - MENTAL STATUS CHANGES [None]
  - PLATELET COUNT DECREASED [None]
  - PLEURAL EFFUSION [None]
  - PORTAL HYPERTENSION [None]
  - SPLENOMEGALY [None]
  - WHITE BLOOD CELL COUNT INCREASED [None]
